FAERS Safety Report 12414856 (Version 1)
Quarter: 2016Q2

REPORT INFORMATION
  Report Type: Spontaneous
  Country: US (occurrence: US)
  Receive Date: 20160529
  Receipt Date: 20160529
  Transmission Date: 20160815
  Serious: Yes (Other)
  Sender: FDA-Public Use
  Company Number: US-ASTRAZENECA-2016SE56014

PATIENT
  Age: 85 Year
  Sex: Female

DRUGS (3)
  1. ABILIFY [Suspect]
     Active Substance: ARIPIPRAZOLE
     Dosage: HALF OF A 5 MG TABLET ONCE DAILY AT NIGHT
     Route: 048
  2. MANY UNKNOWN MEDICATIONS [Concomitant]
  3. SEROQUEL [Suspect]
     Active Substance: QUETIAPINE FUMARATE
     Dosage: 25.0MG UNKNOWN
     Route: 048

REACTIONS (10)
  - Agitation [Not Recovered/Not Resolved]
  - Cystitis [Unknown]
  - Sleep talking [Unknown]
  - Depression [Not Recovered/Not Resolved]
  - Anxiety [Not Recovered/Not Resolved]
  - Urinary retention [Unknown]
  - Intentional product misuse [Unknown]
  - Feeling abnormal [Unknown]
  - Nervousness [Not Recovered/Not Resolved]
  - Restlessness [Unknown]
